FAERS Safety Report 13440258 (Version 2)
Quarter: 2017Q2

REPORT INFORMATION
  Report Type: Spontaneous
  Country: US (occurrence: US)
  Receive Date: 20170413
  Receipt Date: 20170413
  Transmission Date: 20170830
  Serious: No
  Sender: FDA-Public Use
  Company Number: US-ASTELLAS-2016US027374

PATIENT
  Age: 6 Year
  Sex: Male

DRUGS (2)
  1. PROGRAF [Suspect]
     Active Substance: TACROLIMUS\TACROLIMUS ANHYDROUS
     Indication: END STAGE RENAL DISEASE
     Dosage: 5 MG, OTHER ((3 CAP IN AM AND 2 IN THE EVENING)
     Route: 048
     Dates: start: 20150512
  2. PROGRAF [Suspect]
     Active Substance: TACROLIMUS\TACROLIMUS ANHYDROUS
     Indication: END STAGE RENAL DISEASE
     Dosage: 0.5 MG, ONCE DAILY IN THE EVENING
     Route: 048
     Dates: start: 20150512

REACTIONS (1)
  - Off label use [Unknown]

NARRATIVE: CASE EVENT DATE: 20150512
